FAERS Safety Report 24798491 (Version 1)
Quarter: 2025Q1

REPORT INFORMATION
  Report Type: Spontaneous
  Country: LV (occurrence: LV)
  Receive Date: 20250102
  Receipt Date: 20250102
  Transmission Date: 20250409
  Serious: Yes (Hospitalization, Other)
  Sender: Unknown Manufacturer
  Company Number: LV-862174955-ML2024-06821

PATIENT
  Age: 60 Year
  Sex: Male

DRUGS (2)
  1. DICLOFENAC [Suspect]
     Active Substance: DICLOFENAC
     Indication: Osteoarthritis
  2. DICLOFENAC [Suspect]
     Active Substance: DICLOFENAC
     Indication: Pain

REACTIONS (4)
  - Glomerulonephritis minimal lesion [Recovering/Resolving]
  - Renal tubular necrosis [Recovering/Resolving]
  - Nephrotic syndrome [Recovering/Resolving]
  - Acute kidney injury [Recovering/Resolving]
